FAERS Safety Report 5293455-4 (Version None)
Quarter: 2007Q2

REPORT INFORMATION
  Report Type: 
  Country: None (occurrence: None)
  Receive Date: 20070411
  Receipt Date: 20070410
  Transmission Date: 20071010
  Serious: Yes (Other)
  Sender: FDA-Public Use
  Company Number: US-BRISTOL-MYERS SQUIBB COMPANY-13743422

PATIENT
  Sex: Female
  Weight: 63 kg

DRUGS (11)
  1. COUMADIN [Suspect]
     Indication: ATRIAL FIBRILLATION
     Route: 048
  2. LISINOPRIL [Concomitant]
  3. CARDIZEM [Concomitant]
  4. DIGITEK [Concomitant]
  5. LEXAPRO [Concomitant]
  6. ASCORBIC ACID [Concomitant]
  7. CALCIUM LACTATE [Concomitant]
  8. CANSTAT [Concomitant]
  9. PROTEASE [Concomitant]
  10. VITAMIN E [Concomitant]
  11. RED YEAST RICE [Concomitant]

REACTIONS (2)
  - INTERNATIONAL NORMALISED RATIO DECREASED [None]
  - LYMPHOMA [None]
